FAERS Safety Report 6457135-1 (Version None)
Quarter: 2009Q4

REPORT INFORMATION
  Report Type: 
  Country: None (occurrence: None)
  Receive Date: 20091125
  Receipt Date: 20091119
  Transmission Date: 20100525
  Serious: Yes (Other)
  Sender: FDA-Public Use
  Company Number: B0606490A

PATIENT
  Sex: Male

DRUGS (2)
  1. SERETIDE [Suspect]
     Indication: ASTHMA
     Dosage: 2PUFF TWICE PER DAY
     Route: 055
     Dates: start: 20090801
  2. VENTOLIN [Concomitant]
     Indication: ASTHMA
     Route: 055

REACTIONS (8)
  - ASTHMATIC CRISIS [None]
  - COUGH [None]
  - DRUG DISPENSING ERROR [None]
  - DRUG INEFFECTIVE [None]
  - EXPIRED DRUG ADMINISTERED [None]
  - MEDICATION ERROR [None]
  - PRODUCTIVE COUGH [None]
  - VOMITING [None]
